FAERS Safety Report 25395277 (Version 1)
Quarter: 2025Q2

REPORT INFORMATION
  Report Type: Spontaneous
  Country: NL (occurrence: NL)
  Receive Date: 20250604
  Receipt Date: 20250604
  Transmission Date: 20250716
  Serious: Yes (Other)
  Sender: AUROBINDO
  Company Number: NL-LRB-01059841

PATIENT
  Age: 71 Year
  Sex: Male
  Weight: 100 kg

DRUGS (2)
  1. AMITRIPTYLINE HYDROCHLORIDE [Suspect]
     Active Substance: AMITRIPTYLINE HYDROCHLORIDE
     Indication: Neuralgia
     Dosage: 25 MILLIGRAM, ONCE A DAY, 1DD1
     Route: 048
     Dates: start: 20250403, end: 20250430
  2. AMITRIPTYLINE HYDROCHLORIDE [Suspect]
     Active Substance: AMITRIPTYLINE HYDROCHLORIDE
     Dosage: 10 MILLIGRAM, ONCE A DAY, 1DD1
     Route: 048
     Dates: end: 20250403

REACTIONS (2)
  - Retinal vein occlusion [Not Recovered/Not Resolved]
  - Blindness [Not Recovered/Not Resolved]
